FAERS Safety Report 7598332-1 (Version None)
Quarter: 2011Q3

REPORT INFORMATION
  Report Type: 
  Country: None (occurrence: None)
  Receive Date: 20110708
  Receipt Date: 20110627
  Transmission Date: 20111222
  Serious: Yes (Hospitalization)
  Sender: FDA-Public Use
  Company Number: PHHY2011US52580

PATIENT
  Sex: Female
  Weight: 55 kg

DRUGS (10)
  1. VITAMIN E [Concomitant]
  2. PULMOZYME [Concomitant]
     Dosage: 2.5 MG, QD
  3. ZANTAC [Concomitant]
     Dosage: HALF TSP AT BEDTIME P.R.N
  4. ALBUTEROL SULFATE AUTOHALER [Concomitant]
     Dosage: 2 OT, TID, 2 PUFFS
  5. VITAMIN A AND D [Concomitant]
  6. VITAMIN K TAB [Concomitant]
  7. SODIUM CHLORIDE [Concomitant]
     Dosage: BID
  8. TOBI [Suspect]
     Indication: CYSTIC FIBROSIS
     Dosage: 300 MG, BID
  9. ZITHROMAX [Concomitant]
     Dosage: 500 MG, UNK
  10. PANCRELIPASE [Concomitant]
     Dosage: 20,0000 TWO TO THREE WITH MEALS, ONE TO TWO WITH SNACKS

REACTIONS (10)
  - COUGH [None]
  - WEIGHT DECREASED [None]
  - INCREASED ANTEROPOSTERIOR CHEST DIAMETER [None]
  - RALES [None]
  - LUNG INFECTION PSEUDOMONAL [None]
  - WHEEZING [None]
  - SPUTUM DISCOLOURED [None]
  - KYPHOSIS [None]
  - RESPIRATORY DISORDER [None]
  - DYSPNOEA [None]
